FAERS Safety Report 4389268-8 (Version None)
Quarter: 2004Q2

REPORT INFORMATION
  Report Type: 
  Country: None (occurrence: None)
  Receive Date: 20040628
  Receipt Date: 20040616
  Transmission Date: 20050107
  Serious: Yes (Hospitalization)
  Sender: FDA-Public Use
  Company Number: 2004040807

PATIENT
  Age: 68 Year
  Sex: Female

DRUGS (1)
  1. SERTRALINE HYDROCHLORIDE [Suspect]
     Indication: DEPRESSION
     Dosage: 100 MG, ORAL
     Route: 048
     Dates: start: 19940101

REACTIONS (6)
  - AGGRESSION [None]
  - AGITATION [None]
  - DELIRIUM [None]
  - DEMENTIA [None]
  - IRRITABILITY [None]
  - OBSESSIVE THOUGHTS [None]
